FAERS Safety Report 8165036-6 (Version None)
Quarter: 2012Q1

REPORT INFORMATION
  Report Type: 
  Country: None (occurrence: None)
  Receive Date: 20120227
  Receipt Date: 20120216
  Transmission Date: 20120608
  Serious: No
  Sender: FDA-Public Use
  Company Number: US-BIOGENIDEC-2012BI006296

PATIENT
  Sex: Female

DRUGS (3)
  1. AVONEX [Suspect]
     Route: 030
     Dates: start: 20090301, end: 20100201
  2. AVONEX [Suspect]
     Route: 030
     Dates: start: 20071227, end: 20080313
  3. AVONEX [Suspect]
     Indication: MULTIPLE SCLEROSIS
     Route: 030
     Dates: start: 20070901

REACTIONS (3)
  - SPINAL OSTEOARTHRITIS [None]
  - ARTHRITIS [None]
  - FIBROMYALGIA [None]
